FAERS Safety Report 17140895 (Version 1)
Quarter: 2019Q4

REPORT INFORMATION
  Report Type: Spontaneous
  Country: IN (occurrence: IN)
  Receive Date: 20191211
  Receipt Date: 20191211
  Transmission Date: 20200122
  Serious: Yes (Hospitalization, Other)
  Sender: FDA-Public Use
  Company Number: IN-009507513-1912IND001997

PATIENT
  Age: 49 Year
  Sex: Female
  Weight: 44.7 kg

DRUGS (16)
  1. OMEPRAZOLE. [Concomitant]
     Active Substance: OMEPRAZOLE
     Indication: ANTACID THERAPY
     Dosage: UNK
     Dates: start: 20190514
  2. PREGABALIN. [Concomitant]
     Active Substance: PREGABALIN
     Indication: NEUROPATHY PERIPHERAL
  3. THYRONORM [Concomitant]
     Active Substance: LEVOTHYROXINE
     Indication: SUPPLEMENTATION THERAPY
     Dosage: UNK
     Dates: start: 20190514
  4. MOXIFLOXACIN. [Suspect]
     Active Substance: MOXIFLOXACIN
     Indication: PULMONARY TUBERCULOSIS
     Dosage: 600 MILLIGRAM, QD
     Route: 048
     Dates: start: 20190514
  5. BEDAQUILINE [Suspect]
     Active Substance: BEDAQUILINE
     Indication: PULMONARY TUBERCULOSIS
     Dosage: 200 MILLIGRAM, TIW
     Route: 048
     Dates: start: 20190514
  6. ONDANSETRON [Concomitant]
     Active Substance: ONDANSETRON
     Dosage: UNK
     Dates: start: 2019
  7. ONDANSETRON [Concomitant]
     Active Substance: ONDANSETRON
     Indication: ANTIEMETIC SUPPORTIVE CARE
     Dosage: UNK
     Dates: start: 20190514, end: 2019
  8. INSULIN [Concomitant]
     Active Substance: INSULIN NOS
     Indication: DIABETES MELLITUS
     Dosage: UNK
     Dates: start: 20190514
  9. METFORMIN HYDROCHLORIDE (+) TENELIGLIPTIN HYDROBROMIDE [Concomitant]
     Active Substance: METFORMIN\TENELIGLIPTIN
     Indication: DIABETES MELLITUS
     Dosage: UNK
     Dates: start: 20190514
  10. CLOFAZIMINE [Suspect]
     Active Substance: CLOFAZIMINE
     Indication: PULMONARY TUBERCULOSIS
     Dosage: 100 MILLIGRAM, QD
     Route: 048
     Dates: start: 20190514
  11. METOCLOPRAMIDE. [Concomitant]
     Active Substance: METOCLOPRAMIDE
     Indication: ANTIEMETIC SUPPORTIVE CARE
     Dosage: UNK
     Dates: start: 20190514
  12. PYRIDOXINE HYDROCHLORIDE. [Concomitant]
     Active Substance: PYRIDOXINE HYDROCHLORIDE
     Indication: PROPHYLAXIS
     Dosage: UNK
     Dates: start: 20190514
  13. AMOXICILLIN (+) CLAVULANATE POTASSIUM [Suspect]
     Active Substance: AMOXICILLIN\CLAVULANATE POTASSIUM
     Indication: PULMONARY TUBERCULOSIS
     Dosage: 625 MILLIGRAM, QD
     Route: 048
     Dates: start: 20190514
  14. DELAMANID [Suspect]
     Active Substance: DELAMANID
     Indication: PULMONARY TUBERCULOSIS
     Dosage: 200 MILLIGRAM, QD
     Route: 048
     Dates: start: 20190627
  15. PREGABALIN. [Concomitant]
     Active Substance: PREGABALIN
     Indication: PROPHYLAXIS
     Dosage: UNK
     Dates: start: 20190514
  16. IMIPENEM AND CILASTATIN [Suspect]
     Active Substance: CILASTATIN SODIUM\IMIPENEM
     Indication: PULMONARY TUBERCULOSIS
     Dosage: 1 GRAM, QD
     Route: 042
     Dates: start: 20190514

REACTIONS (6)
  - Dyspnoea [Unknown]
  - Diabetic ketoacidosis [Unknown]
  - Metabolic acidosis [Unknown]
  - Bacterial infection [Unknown]
  - Oedema [Unknown]
  - Platelet count decreased [Unknown]

NARRATIVE: CASE EVENT DATE: 20191105
